FAERS Safety Report 8524869-4 (Version None)
Quarter: 2012Q3

REPORT INFORMATION
  Report Type: 
  Country: None (occurrence: None)
  Receive Date: 20120720
  Receipt Date: 20120713
  Transmission Date: 20120928
  Serious: Yes (Death, Life-Threatening, Congenital Anomaly)
  Sender: FDA-Public Use
  Company Number: GXKR2012DE002251

PATIENT

DRUGS (4)
  1. LEVOTHYROXINE SODIUM [Concomitant]
     Dosage: MATERNAL DOSE:75 UG/D
     Route: 064
  2. VENLAFAXINE [Suspect]
     Dosage: MATERNAL DOSE: 75 [MG/D ]
     Route: 064
  3. OMEPRAZOLE [Concomitant]
     Dosage: MATERNAL DOSE: 20 MG/D
     Route: 064
  4. FEMIBION [Concomitant]
     Dosage: MATERNAL DOSE: 0.4 [MG/D ]
     Route: 064

REACTIONS (2)
  - POTTER'S SYNDROME [None]
  - FOETAL EXPOSURE DURING PREGNANCY [None]
